FAERS Safety Report 21619733 (Version 4)
Quarter: 2023Q1

REPORT INFORMATION
  Report Type: Spontaneous
  Country: JP (occurrence: JP)
  Receive Date: 20221121
  Receipt Date: 20230317
  Transmission Date: 20230418
  Serious: Yes (Life-Threatening, Hospitalization)
  Sender: FDA-Public Use
  Company Number: JP-CHUGAI-2022045505

PATIENT
  Age: 81 Year
  Sex: Male
  Weight: 70.7 kg

DRUGS (3)
  1. ROZLYTREK [Suspect]
     Active Substance: ENTRECTINIB
     Indication: Lung adenocarcinoma
     Route: 048
     Dates: start: 20221109, end: 20221111
  2. KETOPROFEN [Concomitant]
     Active Substance: KETOPROFEN
     Dosage: UNK UNK, QD
     Route: 061
  3. ESZOPICLONE [Concomitant]
     Active Substance: ESZOPICLONE
     Dosage: UNK UNK, SINGLE
     Route: 048
     Dates: start: 20221111, end: 20221111

REACTIONS (3)
  - Ventricular tachycardia [Recovered/Resolved]
  - Hepatic function abnormal [Not Recovered/Not Resolved]
  - Renal impairment [Not Recovered/Not Resolved]

NARRATIVE: CASE EVENT DATE: 20221112
